FAERS Safety Report 16813422 (Version 1)
Quarter: 2019Q3

REPORT INFORMATION
  Report Type: Spontaneous
  Country: PL (occurrence: PL)
  Receive Date: 20190917
  Receipt Date: 20190917
  Transmission Date: 20191005
  Serious: Yes (Hospitalization)
  Sender: FDA-Public Use
  Company Number: PL-US-PROVELL PHARMACEUTICALS LLC-9115585

PATIENT
  Age: 45 Year
  Sex: Female
  Weight: 100 kg

DRUGS (1)
  1. EUTHYROX [Suspect]
     Active Substance: LEVOTHYROXINE SODIUM
     Indication: POST PROCEDURAL HYPOTHYROIDISM
     Dosage: 100 (UNITS UNSPECIFIED)
     Dates: start: 2002, end: 20190905

REACTIONS (7)
  - Blood thyroid stimulating hormone increased [Unknown]
  - Diarrhoea [Unknown]
  - Erythema [Unknown]
  - Peripheral swelling [Recovered/Resolved with Sequelae]
  - Dyspnoea [Unknown]
  - Thyroiditis [Not Recovered/Not Resolved]
  - Chills [Recovered/Resolved]

NARRATIVE: CASE EVENT DATE: 20190816
